FAERS Safety Report 8438322-X (Version None)
Quarter: 2012Q2

REPORT INFORMATION
  Report Type: 
  Country: None (occurrence: None)
  Receive Date: 20120614
  Receipt Date: 20120606
  Transmission Date: 20120825
  Serious: Yes (Hospitalization)
  Sender: FDA-Public Use
  Company Number: JP-BAXTER-2012BAX007824

PATIENT
  Sex: Female
  Weight: 48 kg

DRUGS (2)
  1. DIANEAL PD-2 W/ DEXTROSE 4.25% [Suspect]
     Indication: NEPHROSCLEROSIS
     Route: 033
  2. EXTRANEAL [Suspect]
     Indication: NEPHROSCLEROSIS

REACTIONS (2)
  - CARDIAC DISCOMFORT [None]
  - PERITONEAL CLOUDY EFFLUENT [None]
